FAERS Safety Report 12957355 (Version 2)
Quarter: 2016Q4

REPORT INFORMATION
  Report Type: Spontaneous
  Country: JP (occurrence: JP)
  Receive Date: 20161118
  Receipt Date: 20161201
  Transmission Date: 20170207
  Serious: Yes (Hospitalization, Other)
  Sender: FDA-Public Use
  Company Number: JP-TEVA-2016-JP-002619J

PATIENT
  Age: 70 Year
  Sex: Female
  Weight: 52 kg

DRUGS (37)
  1. GASTER [Concomitant]
     Active Substance: FAMOTIDINE
     Indication: GASTRITIS
     Route: 065
     Dates: end: 20160409
  2. DEPAS [Concomitant]
     Active Substance: ETIZOLAM
     Indication: ANXIETY
     Route: 065
     Dates: end: 20160317
  3. ETIZOLAM [Concomitant]
     Active Substance: ETIZOLAM
     Indication: ANXIETY
     Route: 065
     Dates: start: 20160328
  4. LOXONIN [Concomitant]
     Active Substance: LOXOPROFEN SODIUM
     Indication: PLASMA CELL MYELOMA
     Route: 065
     Dates: start: 20160322
  5. LIDOCAINE HYDROCHLORIDE. [Concomitant]
     Active Substance: LIDOCAINE HYDROCHLORIDE
     Indication: ENDOSCOPY UPPER GASTROINTESTINAL TRACT
     Route: 065
     Dates: start: 20160310, end: 20160316
  6. ANETOCAINE [Concomitant]
     Indication: COLONOSCOPY
     Route: 065
     Dates: start: 20160316, end: 20160316
  7. CRAVIT [Concomitant]
     Active Substance: LEVOFLOXACIN
     Indication: FEBRILE NEUTROPENIA
     Route: 065
     Dates: start: 20160419, end: 20160425
  8. IRBESARTAN. [Concomitant]
     Active Substance: IRBESARTAN
     Indication: HYPERTENSION
     Route: 065
     Dates: end: 20160515
  9. CALONAL [Concomitant]
     Active Substance: ACETAMINOPHEN
     Indication: PLASMA CELL MYELOMA
     Route: 065
     Dates: start: 20160322, end: 20160412
  10. ACICLOVIR [Concomitant]
     Active Substance: ACYCLOVIR
     Indication: HERPES ZOSTER
     Route: 065
     Dates: start: 20160328, end: 20160409
  11. ZOMETA [Concomitant]
     Active Substance: ZOLEDRONIC ACID
     Indication: PLASMA CELL MYELOMA
     Route: 065
     Dates: start: 20160405, end: 20160405
  12. AMLODIPINE [Concomitant]
     Active Substance: AMLODIPINE BESYLATE
     Indication: HYPERTENSION
     Route: 065
     Dates: end: 20160515
  13. ZOLPIDEM TARTRATE. [Concomitant]
     Active Substance: ZOLPIDEM TARTRATE
     Indication: INSOMNIA
     Route: 065
     Dates: start: 20160411, end: 20160515
  14. MAGMITT [Concomitant]
     Active Substance: MAGNESIUM OXIDE
     Indication: CONSTIPATION
     Route: 065
     Dates: start: 20160329, end: 20160404
  15. BFLUID [Concomitant]
     Active Substance: AMINO ACIDS\DEXTROSE\ELECTROLYTES NOS\VITAMINS
     Indication: DEHYDRATION
     Route: 065
     Dates: start: 20160411, end: 20160502
  16. LAC-B [Concomitant]
     Active Substance: BIFIDOBACTERIUM SPP.
     Indication: GASTRITIS
     Route: 065
     Dates: start: 20160414
  17. MELPHALAN [Suspect]
     Active Substance: MELPHALAN
     Indication: PLASMA CELL MYELOMA
     Dosage: 14 MILLIGRAM DAILY;
     Route: 048
     Dates: start: 20160328, end: 20160331
  18. POLARAMINE [Concomitant]
     Active Substance: DEXCHLORPHENIRAMINE MALEATE
     Indication: THROMBOSIS
     Route: 065
     Dates: start: 20160415, end: 20160419
  19. HEPAFLUSH [Concomitant]
     Active Substance: HEPARIN SODIUM
     Indication: THROMBOSIS
     Route: 065
     Dates: start: 20160309, end: 20160409
  20. VELCADE [Suspect]
     Active Substance: BORTEZOMIB
     Indication: PLASMA CELL MYELOMA
     Route: 058
     Dates: start: 20160328, end: 20160407
  21. METHYCOBAL [Concomitant]
     Active Substance: METHYLCOBALAMIN
     Indication: VITAMIN B12 DECREASED
     Route: 065
     Dates: start: 20160405, end: 20160405
  22. MIDAZOLAM [Concomitant]
     Active Substance: MIDAZOLAM\MIDAZOLAM HYDROCHLORIDE
     Indication: COLONOSCOPY
     Route: 065
     Dates: start: 20160316, end: 20160323
  23. NIFLEC [Concomitant]
     Active Substance: BICARBONATE ION\POLYETHYLENE GLYCOLS\POTASSIUM CATION\SODIUM CHLORIDE\SODIUM SULFATE ANHYDROUS
     Indication: COLONOSCOPY
     Route: 065
     Dates: start: 20160323, end: 20160323
  24. XYLOCAINE [Concomitant]
     Active Substance: LIDOCAINE HYDROCHLORIDE
     Indication: ENDOSCOPY UPPER GASTROINTESTINAL TRACT
     Route: 065
     Dates: start: 20160411, end: 20160411
  25. FAMOTIDINE. [Concomitant]
     Active Substance: FAMOTIDINE
     Indication: GASTRITIS
     Route: 065
     Dates: start: 20160412
  26. DIQUAS [Concomitant]
     Active Substance: DIQUAFOSOL TETRASODIUM
     Indication: DRY EYE
     Route: 065
  27. PRONASE MS [Concomitant]
     Indication: ENDOSCOPY UPPER GASTROINTESTINAL TRACT
     Route: 065
     Dates: start: 20160316, end: 20160316
  28. PREDNISOLONE TABLETS 5MG. [Suspect]
     Active Substance: PREDNISOLONE
     Indication: PLASMA CELL MYELOMA
     Dosage: 90 MILLIGRAM DAILY;
     Route: 048
     Dates: start: 20160328, end: 20160407
  29. BAKTAR [Concomitant]
     Active Substance: SULFAMETHOXAZOLE\TRIMETHOPRIM
     Indication: PNEUMOCYSTIS JIROVECII PNEUMONIA
     Route: 065
     Dates: start: 20160328, end: 20160409
  30. TERPERAN [Concomitant]
     Active Substance: METOCLOPRAMIDE HYDROCHLORIDE
     Indication: VOMITING
     Route: 065
     Dates: start: 20160329, end: 20160402
  31. SODIUM BICARBONATE. [Concomitant]
     Active Substance: SODIUM BICARBONATE
     Indication: ENDOSCOPY UPPER GASTROINTESTINAL TRACT
     Route: 065
     Dates: start: 20160316, end: 20160316
  32. GLYCERIN. [Concomitant]
     Active Substance: GLYCERIN
     Indication: COLONOSCOPY
     Route: 065
     Dates: start: 20160316, end: 20160316
  33. SENNOSIDE [Concomitant]
     Active Substance: SENNOSIDES
     Indication: COLONOSCOPY
     Route: 065
     Dates: start: 20160322, end: 20160322
  34. DIMETICONE [Concomitant]
     Active Substance: DIMETHICONE
     Indication: COLONOSCOPY
     Route: 065
     Dates: start: 20160316, end: 20160323
  35. CALCICOL [Concomitant]
     Active Substance: CALCIUM GLUCONATE
     Indication: HYPOCALCAEMIA
     Route: 065
     Dates: start: 20160311, end: 20160411
  36. SAXIZON [Concomitant]
     Active Substance: HYDROCORTISONE SODIUM SUCCINATE
     Indication: THROMBOSIS
     Route: 065
     Dates: start: 20160415, end: 20160419
  37. CALCIUM LACTATE [Concomitant]
     Active Substance: CALCIUM LACTATE
     Indication: HYPOCALCAEMIA
     Route: 065
     Dates: start: 20160413, end: 20160515

REACTIONS (10)
  - Diarrhoea [Unknown]
  - Aspartate aminotransferase increased [Unknown]
  - Febrile neutropenia [Unknown]
  - Spinal compression fracture [Not Recovered/Not Resolved]
  - Injection site erythema [Not Recovered/Not Resolved]
  - Oesophageal rupture [Recovered/Resolved]
  - Neutrophil count decreased [Not Recovered/Not Resolved]
  - Rash [Unknown]
  - White blood cell count decreased [Not Recovered/Not Resolved]
  - Alanine aminotransferase increased [Unknown]

NARRATIVE: CASE EVENT DATE: 20160329
